FAERS Safety Report 9529322 (Version 1)
Quarter: 2013Q1

REPORT INFORMATION
  Report Type: Spontaneous
  Country: US (occurrence: None)
  Receive Date: 20130320
  Receipt Date: 20130320
  Transmission Date: 20140127
  Serious: Yes (Other)
  Sender: FDA-Public Use
  Company Number: EUS-2012-01025

PATIENT
  Sex: 0

DRUGS (1)
  1. ASPARAGINASE (ASPARAGINASE) (UNKNOWN) [Suspect]
     Indication: ACUTE LYMPHOCYTIC LEUKAEMIA
     Route: 042

REACTIONS (2)
  - Embolism venous [None]
  - Nervous system disorder [None]
